FAERS Safety Report 9285379 (Version 1)
Quarter: 2013Q2

REPORT INFORMATION
  Report Type: Spontaneous
  Country: US (occurrence: None)
  Receive Date: 20130507
  Receipt Date: 20130507
  Transmission Date: 20140414
  Serious: Yes (Other)
  Sender: FDA-Public Use
  Company Number: AUR-APL-2013-03696

PATIENT
  Age: 46 Year
  Sex: Female

DRUGS (2)
  1. CEFAZOLIN [Suspect]
     Indication: PROPHYLAXIS
     Dosage: 1 GM, INTRAVENOUS
     Route: 042
  2. CEFALEXIN [Suspect]
     Dosage: 2000 MG (500 MG, 1 IN 6 HR), ORAL
     Route: 048

REACTIONS (3)
  - Serratia test positive [None]
  - Folliculitis [None]
  - Scar [None]
